FAERS Safety Report 22229574 (Version 11)
Quarter: 2024Q1

REPORT INFORMATION
  Report Type: Spontaneous
  Country: GB (occurrence: GB)
  Receive Date: 20230419
  Receipt Date: 20240202
  Transmission Date: 20240410
  Serious: Yes (Hospitalization)
  Sender: FDA-Public Use
  Company Number: US-VERTEX PHARMACEUTICALS-2023-005399

PATIENT

DRUGS (3)
  1. ELEXACAFTOR\IVACAFTOR\TEZACAFTOR [Suspect]
     Active Substance: ELEXACAFTOR\IVACAFTOR\TEZACAFTOR
     Indication: Cystic fibrosis
     Dosage: 2 TABS (AM) AND 1 TAB (PM)
     Route: 048
     Dates: start: 2021
  2. PULMOZYME [Concomitant]
     Active Substance: DORNASE ALFA
     Dosage: UNK, BID
  3. SODIUM CHLORIDE [Concomitant]
     Active Substance: SODIUM CHLORIDE

REACTIONS (17)
  - Blood bilirubin increased [Unknown]
  - Dermatitis allergic [Recovered/Resolved]
  - Hospitalisation [Unknown]
  - Pulmonary function test decreased [Recovering/Resolving]
  - General physical health deterioration [Unknown]
  - Mass [Unknown]
  - Dyspnoea [Unknown]
  - Pain [Unknown]
  - Klebsiella infection [Recovered/Resolved]
  - Acinetobacter infection [Recovered/Resolved]
  - Hepatic steatosis [Not Recovered/Not Resolved]
  - Head discomfort [Not Recovered/Not Resolved]
  - Lower respiratory tract infection [Unknown]
  - Pseudomonas infection [Recovering/Resolving]
  - Productive cough [Recovering/Resolving]
  - Splenomegaly [Not Recovered/Not Resolved]
  - Drug ineffective [Unknown]

NARRATIVE: CASE EVENT DATE: 20220101
